FAERS Safety Report 22008722 (Version 4)
Quarter: 2023Q1

REPORT INFORMATION
  Report Type: Report from Study
  Country: CO (occurrence: CO)
  Receive Date: 20230219
  Receipt Date: 20230325
  Transmission Date: 20230418
  Serious: Yes (Hospitalization)
  Sender: FDA-Public Use
  Company Number: CO-ABBVIE-4299024

PATIENT
  Age: 51 Year
  Sex: Female

DRUGS (1)
  1. VENCLEXTA [Suspect]
     Active Substance: VENETOCLAX
     Indication: Chronic lymphocytic leukaemia
     Dosage: FORM STRENGTH: 100 MILLIGRAM
     Route: 048
     Dates: start: 20220318, end: 20230223

REACTIONS (9)
  - Vasodilatation [Recovering/Resolving]
  - Tonsillitis [Recovering/Resolving]
  - Pain in extremity [Recovering/Resolving]
  - Feeding disorder [Not Recovered/Not Resolved]
  - Vomiting [Recovering/Resolving]
  - Gait inability [Not Recovered/Not Resolved]
  - Abdominal pain [Recovering/Resolving]
  - Lymphadenopathy [Not Recovered/Not Resolved]
  - Headache [Recovering/Resolving]

NARRATIVE: CASE EVENT DATE: 20230101
